FAERS Safety Report 8450311-8 (Version None)
Quarter: 2012Q2

REPORT INFORMATION
  Report Type: 
  Country: None (occurrence: None)
  Receive Date: 20120614
  Receipt Date: 20120614
  Transmission Date: 20120825
  Serious: Yes (Other)
  Sender: FDA-Public Use
  Company Number: None

PATIENT
  Age: 67 Year
  Sex: Female
  Weight: 77.1115 kg

DRUGS (1)
  1. CIPROFLOXACIN [Suspect]

REACTIONS (3)
  - BURNING SENSATION [None]
  - TENDON RUPTURE [None]
  - ARTHRALGIA [None]
